FAERS Safety Report 15985679 (Version 1)
Quarter: 2019Q1

REPORT INFORMATION
  Report Type: Spontaneous
  Country: US (occurrence: US)
  Receive Date: 20190220
  Receipt Date: 20190220
  Transmission Date: 20190418
  Serious: No
  Sender: FDA-Public Use
  Company Number: None

PATIENT
  Age: 35 Year
  Sex: Male
  Weight: 108 kg

DRUGS (6)
  1. ZANTAC [Concomitant]
     Active Substance: RANITIDINE HYDROCHLORIDE
  2. ESCITALOPRAM OXALATE 20MG TAB [Suspect]
     Active Substance: ESCITALOPRAM OXALATE
     Indication: DEPRESSION
     Dosage: ?          QUANTITY:135 TABLET(S);OTHER FREQUENCY:1.5 TAB PER DAY;?
     Route: 048
  3. AMLODIPINE 10 MG [Concomitant]
     Active Substance: AMLODIPINE BESYLATE
  4. ESCITALOPRAM OXALATE 20MG TAB [Suspect]
     Active Substance: ESCITALOPRAM OXALATE
     Indication: ANXIETY
     Dosage: ?          QUANTITY:135 TABLET(S);OTHER FREQUENCY:1.5 TAB PER DAY;?
     Route: 048
  5. LAMICTAL 100 MG TAB [Concomitant]
  6. LOSARTAN 100 MG TABS [Concomitant]
     Active Substance: LOSARTAN

REACTIONS (1)
  - Drug ineffective [None]

NARRATIVE: CASE EVENT DATE: 20190213
